FAERS Safety Report 13536818 (Version 2)
Quarter: 2017Q2

REPORT INFORMATION
  Report Type: Report from Study
  Country: US (occurrence: US)
  Receive Date: 20170511
  Receipt Date: 20170517
  Transmission Date: 20170830
  Serious: Yes (Death, Hospitalization)
  Sender: FDA-Public Use
  Company Number: US-SEATTLE GENETICS-2017SGN01142

PATIENT
  Age: 66 Year
  Sex: Male
  Weight: 54.4 kg

DRUGS (11)
  1. DOXORUBICIN HYDROCHLORIDE. [Suspect]
     Active Substance: DOXORUBICIN HYDROCHLORIDE
     Indication: HODGKIN^S DISEASE
     Dosage: 25 MG/M2, QCYCLE
     Route: 042
     Dates: start: 20170301, end: 20170301
  2. MEPRON                             /01181501/ [Concomitant]
     Active Substance: ATOVAQUONE
     Indication: ANTIFUNGAL PROPHYLAXIS
  3. TRIUMEQ [Concomitant]
     Active Substance: ABACAVIR SULFATE\DOLUTEGRAVIR SODIUM\LAMIVUDINE
  4. VINBLASTINE [Suspect]
     Active Substance: VINBLASTINE
     Indication: HODGKIN^S DISEASE
     Dosage: 6 MG/M2, QCYCLE
     Route: 042
     Dates: start: 20170301, end: 20170301
  5. CLOPIDOGREL [Concomitant]
     Active Substance: CLOPIDOGREL BISULFATE
     Dosage: 75 MG, QD
     Route: 048
  6. ACYCLOVIR                          /00587301/ [Concomitant]
     Active Substance: ACYCLOVIR
     Dosage: 800 MG, UNK
     Route: 048
  7. BRENTUXIMAB VEDOTIN [Suspect]
     Active Substance: BRENTUXIMAB VEDOTIN
     Indication: HODGKIN^S DISEASE
     Dosage: 1.2 MG/KG, QCYCLE
     Route: 042
     Dates: start: 20170301, end: 20170301
  8. DACARBAZINE. [Suspect]
     Active Substance: DACARBAZINE
     Indication: HODGKIN^S DISEASE
     Dosage: 375 MG/M2, QCYCLE
     Route: 042
     Dates: start: 20170301, end: 20170301
  9. KETOCONAZOLE. [Concomitant]
     Active Substance: KETOCONAZOLE
     Route: 061
  10. GABAPENTIN. [Concomitant]
     Active Substance: GABAPENTIN
     Dosage: 100 MG, UNK
  11. INSULIN DETEMIR [Concomitant]
     Active Substance: INSULIN DETEMIR
     Dosage: 20 UNK, UNK
     Route: 058

REACTIONS (8)
  - Sepsis [Unknown]
  - Platelet count decreased [Recovered/Resolved]
  - Neutrophil count decreased [Recovered/Resolved]
  - Depressed level of consciousness [Unknown]
  - White blood cell count decreased [Recovered/Resolved]
  - Haemorrhage intracranial [Fatal]
  - Respiratory failure [Unknown]
  - Diarrhoea [Unknown]

NARRATIVE: CASE EVENT DATE: 20170307
